FAERS Safety Report 6103811-X (Version None)
Quarter: 2009Q1

REPORT INFORMATION
  Report Type: 
  Country: None (occurrence: None)
  Receive Date: 20090305
  Receipt Date: 20090219
  Transmission Date: 20090719
  Serious: Yes (Hospitalization)
  Sender: FDA-Public Use
  Company Number: US-ELI_LILLY_AND_COMPANY-US200901001248

PATIENT
  Sex: Female
  Weight: 55.329 kg

DRUGS (4)
  1. FORTEO [Suspect]
     Indication: OSTEOPOROSIS
     Dosage: UNK, UNK
     Dates: start: 20070901
  2. WARFARIN SODIUM [Concomitant]
  3. LIPITOR [Concomitant]
  4. CARDIZEM [Concomitant]

REACTIONS (1)
  - LUMBAR SPINAL STENOSIS [None]
